FAERS Safety Report 22390358 (Version 1)
Quarter: 2023Q2

REPORT INFORMATION
  Report Type: Spontaneous
  Country: SE (occurrence: SE)
  Receive Date: 20230531
  Receipt Date: 20230531
  Transmission Date: 20230722
  Serious: Yes (Other)
  Sender: FDA-Public Use
  Company Number: None

PATIENT
  Age: 43 Year
  Sex: Female

DRUGS (2)
  1. DROSPIRENONE [Suspect]
     Active Substance: DROSPIRENONE
     Indication: Endometriosis
     Dosage: 1 DOSAGE FORM, QD
     Route: 048
     Dates: start: 20230310, end: 20230515
  2. DROSPIRENONE [Suspect]
     Active Substance: DROSPIRENONE
     Indication: Pelvic adhesions

REACTIONS (4)
  - Breast discomfort [Recovering/Resolving]
  - Breast tenderness [Recovering/Resolving]
  - Oedema [Recovering/Resolving]
  - Back pain [Recovering/Resolving]

NARRATIVE: CASE EVENT DATE: 20230407
